FAERS Safety Report 11988743 (Version 1)
Quarter: 2016Q1

REPORT INFORMATION
  Report Type: Spontaneous
  Country: GB (occurrence: GB)
  Receive Date: 20160202
  Receipt Date: 20160202
  Transmission Date: 20160526
  Serious: Yes (Other)
  Sender: FDA-Public Use
  Company Number: GB-JNJFOC-20160115450

PATIENT
  Sex: Male

DRUGS (1)
  1. INFLIXIMAB, RECOMBINANT [Suspect]
     Active Substance: INFLIXIMAB
     Indication: PRODUCT USED FOR UNKNOWN INDICATION
     Dosage: FREQUENCY AT 1, 2, 3, 5, 7, 9, AND 12 WEEKS??INFUSION DURATION 2 HOURS
     Route: 042

REACTIONS (6)
  - Tuberculosis [Unknown]
  - Nasopharyngitis [Unknown]
  - Infection [Unknown]
  - Drug specific antibody present [Unknown]
  - Mycobacterium tuberculosis complex test positive [Unknown]
  - Adverse event [Unknown]
